FAERS Safety Report 7638553-2 (Version None)
Quarter: 2011Q3

REPORT INFORMATION
  Report Type: 
  Country: None (occurrence: None)
  Receive Date: 20110727
  Receipt Date: 20110721
  Transmission Date: 20111222
  Serious: Yes (Life-Threatening, Hospitalization)
  Sender: FDA-Public Use
  Company Number: AU-BRACCO-000115

PATIENT
  Sex: Male
  Weight: 80 kg

DRUGS (3)
  1. ISOVUE-370 [Suspect]
     Indication: RENAL CYST
     Route: 042
     Dates: start: 20110121, end: 20110121
  2. ISOVUE-370 [Suspect]
     Indication: UROGRAM
     Route: 042
     Dates: start: 20110121, end: 20110121
  3. ISOVUE-370 [Suspect]
     Indication: RENAL CELL CARCINOMA
     Route: 042
     Dates: start: 20110121, end: 20110121

REACTIONS (2)
  - ANAPHYLACTIC REACTION [None]
  - DISSEMINATED INTRAVASCULAR COAGULATION [None]
